FAERS Safety Report 24550175 (Version 1)
Quarter: 2024Q4

REPORT INFORMATION
  Report Type: Spontaneous
  Country: US (occurrence: US)
  Receive Date: 20241025
  Receipt Date: 20241025
  Transmission Date: 20250114
  Serious: No
  Sender: PFIZER
  Company Number: US-PFIZER INC-PV202400138196

PATIENT
  Age: 74 Year
  Sex: Female

DRUGS (2)
  1. VELSIPITY [Interacting]
     Active Substance: ETRASIMOD ARGININE
     Dosage: 2 MG, 1X/DAY
  2. ZYPREXA [Interacting]
     Active Substance: OLANZAPINE
     Dosage: UNK

REACTIONS (1)
  - Drug interaction [Unknown]
